FAERS Safety Report 25357665 (Version 1)
Quarter: 2025Q2

REPORT INFORMATION
  Report Type: Spontaneous
  Country: US (occurrence: US)
  Receive Date: 20250526
  Receipt Date: 20250526
  Transmission Date: 20250717
  Serious: Yes (Other)
  Sender: SANOFI AVENTIS
  Company Number: US-SA-2025SA148868

PATIENT
  Age: 28 Year
  Sex: Male

DRUGS (1)
  1. DUPIXENT [Suspect]
     Active Substance: DUPILUMAB
     Indication: Eosinophilic oesophagitis
     Dosage: 300 MG, QW
     Route: 058
     Dates: start: 202409, end: 20250513

REACTIONS (5)
  - Neoplasm malignant [Unknown]
  - Cough [Unknown]
  - Lymphadenopathy [Unknown]
  - Neck mass [Unknown]
  - Mass [Unknown]

NARRATIVE: CASE EVENT DATE: 20250301
